FAERS Safety Report 16753989 (Version 1)
Quarter: 2019Q3

REPORT INFORMATION
  Report Type: Spontaneous
  Country: US (occurrence: US)
  Receive Date: 20190829
  Receipt Date: 20190829
  Transmission Date: 20191005
  Serious: Yes (Other)
  Sender: FDA-Public Use
  Company Number: US-REGULIS-2073813

PATIENT
  Age: 47 Year
  Sex: Male
  Weight: 48.3 kg

DRUGS (15)
  1. SODIUM CHLORIDE. [Concomitant]
     Active Substance: SODIUM CHLORIDE
     Dates: start: 20190807, end: 20190808
  2. BIKTARVY [Concomitant]
     Active Substance: BICTEGRAVIR SODIUM\EMTRICITABINE\TENOFOVIR ALAFENAMIDE FUMARATE
     Route: 048
  3. SODIUM CHLORIDE. [Concomitant]
     Active Substance: SODIUM CHLORIDE
     Dates: start: 20190807, end: 20190807
  4. VITAMIN B-1 (THIAMINE) [Concomitant]
     Route: 048
     Dates: start: 20190808, end: 20190813
  5. FOLVITE (FOLIC ACID) [Concomitant]
     Route: 048
     Dates: start: 20190808
  6. DUONEB [Concomitant]
     Active Substance: ALBUTEROL SULFATE\IPRATROPIUM BROMIDE
     Dates: start: 20190807
  7. MYCOSTATIN [Concomitant]
     Active Substance: NYSTATIN
     Route: 048
     Dates: start: 20190808
  8. TYLENOL [Concomitant]
     Active Substance: ACETAMINOPHEN
     Route: 048
     Dates: start: 20190807
  9. ANCEF [Concomitant]
     Active Substance: CEFAZOLIN SODIUM
     Dates: start: 20190808, end: 20190809
  10. PROVAYBLUE [Suspect]
     Active Substance: METHYLENE BLUE
     Indication: METHAEMOGLOBINAEMIA
     Route: 042
     Dates: start: 20190808, end: 20190808
  11. DAPSONE. [Concomitant]
     Active Substance: DAPSONE
     Route: 048
     Dates: start: 20190807, end: 20190808
  12. LOVENOX [Concomitant]
     Active Substance: ENOXAPARIN SODIUM
     Route: 058
     Dates: start: 20190807
  13. PROTONIX [Concomitant]
     Active Substance: PANTOPRAZOLE SODIUM
     Route: 048
     Dates: start: 20190807
  14. ANCEF [Concomitant]
     Active Substance: CEFAZOLIN SODIUM
     Dates: start: 20190807, end: 20190808
  15. SODIUM CHLORIDE. [Concomitant]
     Active Substance: SODIUM CHLORIDE
     Dates: start: 20190807, end: 20190809

REACTIONS (3)
  - Seizure [Recovered/Resolved]
  - Hypomagnesaemia [Not Recovered/Not Resolved]
  - Hypokalaemia [Not Recovered/Not Resolved]

NARRATIVE: CASE EVENT DATE: 20190808
